FAERS Safety Report 20321752 (Version 1)
Quarter: 2022Q1

REPORT INFORMATION
  Report Type: Spontaneous
  Country: TH (occurrence: TH)
  Receive Date: 20220111
  Receipt Date: 20220111
  Transmission Date: 20220424
  Serious: Yes (Other)
  Sender: FDA-Public Use
  Company Number: TH-JNJFOC-20211264380

PATIENT
  Age: 7 Year
  Sex: Male
  Weight: 23.3 kg

DRUGS (2)
  1. RISPERDAL [Suspect]
     Active Substance: RISPERIDONE
     Indication: Psychomotor hyperactivity
     Route: 065
  2. RISPERDAL [Suspect]
     Active Substance: RISPERIDONE
     Route: 065

REACTIONS (7)
  - Galactocele [Recovered/Resolved]
  - Hyperprolactinaemia [Recovered/Resolved]
  - Hypercholesterolaemia [Unknown]
  - Hypertriglyceridaemia [Unknown]
  - Impaired fasting glucose [Unknown]
  - Off label use [Unknown]
  - Product use in unapproved indication [Unknown]
